FAERS Safety Report 4910051-6 (Version None)
Quarter: 2006Q1

REPORT INFORMATION
  Report Type: 
  Country: None (occurrence: None)
  Receive Date: 20060208
  Receipt Date: 20060125
  Transmission Date: 20060701
  Serious: Yes (Death)
  Sender: FDA-Public Use
  Company Number: 2006BH001326

PATIENT
  Age: 76 Year
  Sex: Male

DRUGS (1)
  1. LIDOCAINE HYDROCHLORIDE WITH DEXTROSE [Suspect]
     Indication: VENTRICULAR ARRHYTHMIA
     Dosage: IV
     Route: 042

REACTIONS (4)
  - ACCIDENTAL OVERDOSE [None]
  - CARDIAC ARREST [None]
  - GRAND MAL CONVULSION [None]
  - INCORRECT DOSE ADMINISTERED [None]
